FAERS Safety Report 13608124 (Version 1)
Quarter: 2017Q2

REPORT INFORMATION
  Report Type: Spontaneous
  Country: US (occurrence: US)
  Receive Date: 20170602
  Receipt Date: 20170602
  Transmission Date: 20170830
  Serious: Yes (Hospitalization)
  Sender: FDA-Public Use
  Company Number: US-ASTELLAS-2017US019412

PATIENT
  Age: 94 Year
  Sex: Male

DRUGS (1)
  1. XTANDI [Suspect]
     Active Substance: ENZALUTAMIDE
     Indication: PROSTATE CANCER METASTATIC
     Route: 048
     Dates: start: 20170509

REACTIONS (7)
  - Underdose [Unknown]
  - Bladder obstruction [Not Recovered/Not Resolved]
  - Drug dose omission [Unknown]
  - Hypersomnia [Unknown]
  - Product size issue [Unknown]
  - Dysphagia [Unknown]
  - Fatigue [Unknown]

NARRATIVE: CASE EVENT DATE: 20170511
